FAERS Safety Report 6006098-1 (Version None)
Quarter: 2008Q4

REPORT INFORMATION
  Report Type: 
  Country: None (occurrence: None)
  Receive Date: 20081217
  Receipt Date: 20081205
  Transmission Date: 20090506
  Serious: Yes (Other)
  Sender: FDA-Public Use
  Company Number: ES-PFIZER INC-2008152895

PATIENT

DRUGS (1)
  1. ANIDULAFUNGIN [Suspect]
     Dosage: UNK
     Dates: start: 20081101, end: 20080101

REACTIONS (1)
  - METABOLIC ACIDOSIS [None]
